FAERS Safety Report 11907396 (Version 1)
Quarter: 2016Q1

REPORT INFORMATION
  Report Type: Spontaneous
  Country: US (occurrence: US)
  Receive Date: 20160111
  Receipt Date: 20160111
  Transmission Date: 20160526
  Serious: Yes (Other)
  Sender: FDA-Public Use
  Company Number: US-SA-2016SA003147

PATIENT
  Age: 82 Year
  Sex: Male

DRUGS (3)
  1. LANTUS [Concomitant]
     Active Substance: INSULIN GLARGINE
  2. TOUJEO [Suspect]
     Active Substance: INSULIN GLARGINE
     Indication: TYPE 2 DIABETES MELLITUS
     Dosage: DOSE:36 UNIT(S)
     Route: 065
     Dates: start: 201512
  3. SOLOSTAR [Concomitant]
     Active Substance: DEVICE
     Dates: start: 201512

REACTIONS (8)
  - Confusional state [Unknown]
  - Cough [Unknown]
  - Blood glucose increased [Unknown]
  - Dyspnoea [Unknown]
  - Pneumonia [Unknown]
  - Oropharyngeal pain [Unknown]
  - Fatigue [Unknown]
  - Hallucination [Unknown]

NARRATIVE: CASE EVENT DATE: 20150104
